FAERS Safety Report 9366363 (Version 1)
Quarter: 2013Q2

REPORT INFORMATION
  Report Type: Spontaneous
  Country: US (occurrence: None)
  Receive Date: 20130620
  Receipt Date: 20130620
  Transmission Date: 20140414
  Serious: Yes (Hospitalization)
  Sender: FDA-Public Use
  Company Number: 2013AP006082

PATIENT
  Age: 46 Year
  Sex: Female

DRUGS (2)
  1. GABAPENTIN [Suspect]
     Indication: DRUG ABUSE
  2. METHADONE [Suspect]
     Indication: DRUG ABUSE

REACTIONS (4)
  - Coma [None]
  - Respiratory failure [None]
  - Myoclonus [None]
  - Tremor [None]
